FAERS Safety Report 15967394 (Version 1)
Quarter: 2019Q1

REPORT INFORMATION
  Report Type: Spontaneous
  Country: US (occurrence: US)
  Receive Date: 20190215
  Receipt Date: 20190215
  Transmission Date: 20190418
  Serious: No
  Sender: FDA-Public Use
  Company Number: US-SA-2019SA041856

PATIENT

DRUGS (5)
  1. ENBREL [Suspect]
     Active Substance: ETANERCEPT
     Dosage: UNK
     Route: 065
     Dates: start: 201404, end: 201405
  2. ORENCIA [Suspect]
     Active Substance: ABATACEPT
     Dosage: UNK
     Route: 065
     Dates: start: 201412, end: 201701
  3. ARAVA [Suspect]
     Active Substance: LEFLUNOMIDE
     Dosage: UNK
     Route: 065
     Dates: start: 201411, end: 201503
  4. CIMZIA [Suspect]
     Active Substance: CERTOLIZUMAB PEGOL
     Route: 065
  5. METHOTREXATE. [Suspect]
     Active Substance: METHOTREXATE
     Dosage: UNK
     Route: 065
     Dates: start: 201405, end: 201411

REACTIONS (8)
  - Rash [Unknown]
  - Chills [Unknown]
  - Infection [Unknown]
  - Nausea [Unknown]
  - Palpitations [Unknown]
  - Pharyngitis [Unknown]
  - Dizziness [Unknown]
  - Arthralgia [Unknown]
